FAERS Safety Report 16966294 (Version 1)
Quarter: 2019Q4

REPORT INFORMATION
  Report Type: Report from Study
  Country: None (occurrence: US)
  Receive Date: 20191028
  Receipt Date: 20191028
  Transmission Date: 20200122
  Serious: Yes (Hospitalization, Other)
  Sender: FDA-Public Use
  Company Number: US-ABBVIE-19K-163-2974335-00

PATIENT
  Sex: Female
  Weight: 104.87 kg

DRUGS (1)
  1. CREON [Suspect]
     Active Substance: PANCRELIPASE AMYLASE\PANCRELIPASE LIPASE\PANCRELIPASE PROTEASE
     Indication: PANCREATITIS CHRONIC
     Dosage: TWO TABLETS THREE TIMES A DAY AND ONE WITH SNACK BEFORE BED TIME
     Route: 048
     Dates: start: 2016

REACTIONS (4)
  - Lymphoedema [Not Recovered/Not Resolved]
  - Device related infection [Recovering/Resolving]
  - Medical device site scar [Recovering/Resolving]
  - Device leakage [Recovering/Resolving]

NARRATIVE: CASE EVENT DATE: 2019
